FAERS Safety Report 9711084 (Version 1)
Quarter: 2013Q4

REPORT INFORMATION
  Report Type: Spontaneous
  Country: US (occurrence: None)
  Receive Date: 20131125
  Receipt Date: 20131125
  Transmission Date: 20140711
  Serious: Yes (Other)
  Sender: FDA-Public Use
  Company Number: None

PATIENT
  Age: 34 Year
  Sex: Female
  Weight: 61.24 kg

DRUGS (1)
  1. MIRENA [Suspect]

REACTIONS (12)
  - Pain [None]
  - Device extrusion [None]
  - Hypoaesthesia [None]
  - Hypoaesthesia [None]
  - Back pain [None]
  - Headache [None]
  - Abdominal distension [None]
  - Vaginal haemorrhage [None]
  - Malaise [None]
  - Irritability [None]
  - Nausea [None]
  - Paraesthesia [None]
